FAERS Safety Report 12547144 (Version 4)
Quarter: 2019Q4

REPORT INFORMATION
  Report Type: Report from Study
  Country: DO (occurrence: DO)
  Receive Date: 20160711
  Receipt Date: 20191227
  Transmission Date: 20200122
  Serious: Yes (Other)
  Sender: FDA-Public Use
  Company Number: PHHY2016DO093200

PATIENT
  Sex: Female
  Weight: 81.63 kg

DRUGS (3)
  1. NABRATIN [Concomitant]
     Active Substance: CLOPIDOGREL BISULFATE
     Indication: PRODUCT USED FOR UNKNOWN INDICATION
     Dosage: 1 DF, QD
     Route: 065
  2. PARMITAL [Concomitant]
     Indication: PRODUCT USED FOR UNKNOWN INDICATION
     Route: 065
  3. CO-DIOVAN [Suspect]
     Active Substance: HYDROCHLOROTHIAZIDE\VALSARTAN
     Indication: HYPERTENSION
     Dosage: 1 DF (HYDROCHLOROTHIAZIDE 12.5 MG, VALSARTAN 80 MG), UNK
     Route: 065

REACTIONS (8)
  - Parkinson^s disease [Unknown]
  - Deafness [Not Recovered/Not Resolved]
  - General physical health deterioration [Unknown]
  - Dizziness [Unknown]
  - Convalescent [Unknown]
  - Gastrooesophageal reflux disease [Not Recovered/Not Resolved]
  - Amnesia [Unknown]
  - Speech disorder [Not Recovered/Not Resolved]
